FAERS Safety Report 8926823 (Version 3)
Quarter: 2013Q4

REPORT INFORMATION
  Report Type: Report from Study
  Country: JP (occurrence: JP)
  Receive Date: 20121127
  Receipt Date: 20131105
  Transmission Date: 20140711
  Serious: Yes (Hospitalization)
  Sender: FDA-Public Use
  Company Number: JP-VERTEX PHARMACEUTICAL INC.-AE-2012-001593

PATIENT
  Age: 60 Year
  Sex: Male

DRUGS (11)
  1. VX-950 (TELAPREVIR) [Suspect]
     Indication: CHRONIC HEPATITIS C
     Dosage: 2250 MG, QD
     Route: 048
     Dates: start: 20120123, end: 20120126
  2. PEGINTRON [Suspect]
     Indication: CHRONIC HEPATITIS C
     Dosage: 1.5 ?G/KG,QW
     Route: 058
     Dates: start: 20120123, end: 20121010
  3. REBETOL [Suspect]
     Indication: CHRONIC HEPATITIS C
     Dosage: 800 MG, QD
     Route: 048
     Dates: start: 20120123, end: 20120127
  4. REBETOL [Suspect]
     Dosage: 800 MG, QD
     Route: 048
     Dates: start: 20120206, end: 20121010
  5. AMLODIN [Concomitant]
     Dosage: 5 MG, QD
     Route: 048
  6. GLACTIV [Concomitant]
     Dosage: 50 MG, QD
     Route: 048
  7. HYALEIN [Concomitant]
     Dosage: UNK, PRN
     Route: 047
  8. MAGMITT [Concomitant]
     Dosage: UNK, PRN
     Route: 048
  9. AMARYL [Concomitant]
     Dosage: 2 MG, QD
     Route: 048
     Dates: start: 20120214
  10. MUCOSTA [Concomitant]
     Dosage: 300 MG, QD
     Route: 048
     Dates: start: 20120306
  11. OLMETEC [Concomitant]
     Dosage: 20 MG, QD
     Route: 048

REACTIONS (1)
  - Hepatocellular carcinoma [Recovered/Resolved]
